FAERS Safety Report 17216357 (Version 1)
Quarter: 2019Q4

REPORT INFORMATION
  Report Type: Spontaneous
  Country: ES (occurrence: ES)
  Receive Date: 20191230
  Receipt Date: 20191230
  Transmission Date: 20200122
  Serious: Yes (Hospitalization)
  Sender: FDA-Public Use
  Company Number: ES-BAUSCH-BL-2019-066787

PATIENT
  Sex: Female
  Weight: 52 kg

DRUGS (1)
  1. MOVIPREP [Suspect]
     Active Substance: ASCORBIC ACID\POLYETHYLENE GLYCOL 3350\POTASSIUM CHLORIDE\SODIUM ASCORBATE\SODIUM CHLORIDE\SODIUM SULFATE
     Indication: BOWEL PREPARATION
     Dosage: SOLUTION A PLUS SOLUTION B MIXED WITH 1 LITRE OF WATER AT 2 PM
     Route: 048
     Dates: start: 20191213, end: 20191213

REACTIONS (4)
  - Headache [Recovering/Resolving]
  - Paraesthesia [Recovered/Resolved]
  - Tremor [Recovering/Resolving]
  - Urticaria [Recovering/Resolving]

NARRATIVE: CASE EVENT DATE: 20191213
